FAERS Safety Report 5408181-8 (Version None)
Quarter: 2007Q3

REPORT INFORMATION
  Report Type: 
  Country: None (occurrence: None)
  Receive Date: 20070806
  Receipt Date: 20070724
  Transmission Date: 20080115
  Serious: Yes (Life-Threatening, Hospitalization)
  Sender: FDA-Public Use
  Company Number: VNL_0529_2007

PATIENT
  Sex: Male

DRUGS (2)
  1. APO-GO (APO-GO PFS 5 MG/ML SOLUTION FOR INFUSION IN PRE-FILLED SYRINGE [Suspect]
     Indication: PARKINSON'S DISEASE
     Dosage: 5 MG PER HOUR FOR SUBCUTANEOUS
     Route: 058
     Dates: start: 20060626
  2. SINEMET [Suspect]
     Indication: PARKINSON'S DISEASE
     Dosage: (25/100 MG BID ORAL)
     Route: 048
     Dates: start: 19980701

REACTIONS (1)
  - HAEMOLYTIC ANAEMIA [None]
